FAERS Safety Report 8553672-4 (Version None)
Quarter: 2012Q3

REPORT INFORMATION
  Report Type: 
  Country: None (occurrence: None)
  Receive Date: 20120731
  Receipt Date: 20081126
  Transmission Date: 20120928
  Serious: Yes (Death)
  Sender: FDA-Public Use
  Company Number: CO-PFIZER INC-2012180748

PATIENT
  Sex: Female

DRUGS (1)
  1. NORVASC [Suspect]
     Indication: HYPERTENSION
     Dosage: 1 DF, 1X/DAY
     Route: 048

REACTIONS (3)
  - DEATH [None]
  - OEDEMA PERIPHERAL [None]
  - DYSPNOEA [None]
